FAERS Safety Report 6924390-0 (Version None)
Quarter: 2010Q3

REPORT INFORMATION
  Report Type: 
  Country: None (occurrence: None)
  Receive Date: 20100730
  Receipt Date: 20100716
  Transmission Date: 20110219
  Serious: Yes (Life-Threatening, Hospitalization)
  Sender: FDA-Public Use
  Company Number: M-10-502/SG--IGSA-GB1695

PATIENT
  Age: 81 Year
  Sex: Female
  Weight: 64 kg

DRUGS (10)
  1. ALBUTEIN [Suspect]
     Indication: FLUID REPLACEMENT
     Dosage: 125 ML X 1 DOSE IV
     Route: 042
     Dates: start: 20100715
  2. CARBOPLATIN [Concomitant]
  3. ENTECAVIR [Concomitant]
  4. ATENOLOL + AMLODIPINE [Concomitant]
  5. TOLBUTAMIDE [Concomitant]
  6. SIMVASTATIN [Concomitant]
  7. LOVAZA [Concomitant]
  8. ESTER-C 500 PLUS [Concomitant]
  9. LACTULOSE [Concomitant]
  10. SODIUM PHOSPHATES [Concomitant]

REACTIONS (6)
  - ASTHMA [None]
  - CHILLS [None]
  - DEVICE RELATED INFECTION [None]
  - DRUG HYPERSENSITIVITY [None]
  - HEART RATE INCREASED [None]
  - MORGANELLA INFECTION [None]
